FAERS Safety Report 4550031-6 (Version None)
Quarter: 2005Q1

REPORT INFORMATION
  Report Type: 
  Country: None (occurrence: None)
  Receive Date: 20050112
  Receipt Date: 20040903
  Transmission Date: 20050727
  Serious: Yes (Disabling, Other)
  Sender: FDA-Public Use
  Company Number: US-BRISTOL-MYERS SQUIBB COMPANY-12692380

PATIENT
  Age: 69 Year
  Sex: Male
  Weight: 77 kg

DRUGS (12)
  1. ERBITUX [Suspect]
     Indication: COLON CANCER
     Route: 042
     Dates: start: 20040413
  2. TYLENOL [Concomitant]
     Indication: PREMEDICATION
  3. OXALIPLATIN [Concomitant]
     Route: 042
  4. CLARINEX [Concomitant]
  5. ASPIRIN [Concomitant]
  6. COUMADIN [Concomitant]
     Dosage: FOR PORT.
  7. AMBIEN [Concomitant]
  8. LOMOTIL [Concomitant]
     Indication: DIARRHOEA
     Dosage: EVERY 8 HOURS AS NEEDED.
  9. PHENERGAN [Concomitant]
     Dosage: SUPPOSITORY. 1 RECTALLY EVERY 6 HOURS PRN.
     Route: 054
  10. BENADRYL [Concomitant]
     Indication: PREMEDICATION
     Dates: start: 20040413
  11. CIMETIDINE [Concomitant]
     Indication: PREMEDICATION
     Dates: start: 20040413
  12. DECADRON [Concomitant]
     Indication: PREMEDICATION
     Dosage: 10 MG IN 100 CC'S D5W IVPB.
     Route: 042
     Dates: start: 20040413

REACTIONS (4)
  - DERMATITIS ACNEIFORM [None]
  - FATIGUE [None]
  - HAEMORRHAGE [None]
  - SKIN ULCER [None]
